FAERS Safety Report 8891063 (Version 2)
Quarter: 2012Q4

REPORT INFORMATION
  Report Type: 
  Country: US (occurrence: US)
  Receive Date: 20121107
  Receipt Date: 20121120
  Transmission Date: 20130627
  Serious: Yes (Death)
  Sender: FDA-Public Use
  Company Number: US-009507513-1211USA002580

PATIENT
  Age: 45 Year
  Sex: Female

DRUGS (2)
  1. SAPHRIS [Suspect]
     Indication: POST-TRAUMATIC STRESS DISORDER
     Dosage: UNK
     Route: 060
     Dates: start: 201205
  2. CLONOPIN [Concomitant]

REACTIONS (7)
  - Completed suicide [Fatal]
  - Emotional poverty [Unknown]
  - Mental disorder [Unknown]
  - Hypoaesthesia [Unknown]
  - Adverse event [Unknown]
  - Eye movement disorder [Unknown]
  - Gait disturbance [Unknown]
